FAERS Safety Report 10194574 (Version 1)
Quarter: 2014Q2

REPORT INFORMATION
  Report Type: Spontaneous
  Country: US (occurrence: US)
  Receive Date: 20140526
  Receipt Date: 20140526
  Transmission Date: 20141212
  Serious: No
  Sender: FDA-Public Use
  Company Number: US-BIOGENIDEC-2014BI044281

PATIENT
  Age: 57 Year
  Sex: Male

DRUGS (1)
  1. TECFIDERA [Suspect]
     Indication: MULTIPLE SCLEROSIS
     Dates: start: 2014, end: 2014

REACTIONS (5)
  - Coordination abnormal [Recovered/Resolved]
  - Gait disturbance [Recovered/Resolved]
  - Body temperature increased [Recovered/Resolved]
  - Gastrointestinal disorder [Recovered/Resolved]
  - Flushing [Recovered/Resolved]
